FAERS Safety Report 23895936 (Version 2)
Quarter: 2024Q3

REPORT INFORMATION
  Report Type: Spontaneous
  Country: US (occurrence: US)
  Receive Date: 20240524
  Receipt Date: 20240705
  Transmission Date: 20241016
  Serious: No
  Sender: EISAI
  Company Number: US-Eisai-EC-2024-165829

PATIENT
  Age: 66 Year
  Sex: Female
  Weight: 66 kg

DRUGS (2)
  1. LEQEMBI [Suspect]
     Active Substance: LECANEMAB-IRMB
     Indication: Dementia Alzheimer^s type
     Dosage: DOSE UNKNOWN
     Dates: start: 20240506
  2. TYLENOL [Concomitant]
     Active Substance: ACETAMINOPHEN

REACTIONS (1)
  - Pain [Recovered/Resolved]

NARRATIVE: CASE EVENT DATE: 20240506
